FAERS Safety Report 5489781-6 (Version None)
Quarter: 2007Q4

REPORT INFORMATION
  Report Type: 
  Country: None (occurrence: None)
  Receive Date: 20071018
  Receipt Date: 20060303
  Transmission Date: 20080405
  Serious: Yes (Hospitalization)
  Sender: FDA-Public Use
  Company Number: US-JNJFOC-20031000088

PATIENT
  Sex: Male
  Weight: 75.3 kg

DRUGS (8)
  1. REMICADE [Suspect]
     Route: 042
  2. REMICADE [Suspect]
     Route: 042
  3. REMICADE [Suspect]
     Indication: CROHN'S DISEASE
     Route: 042
  4. PENTASA [Concomitant]
  5. AZATHIOPRINE [Concomitant]
  6. PREDNISONE [Concomitant]
     Indication: CROHN'S DISEASE
  7. ACIPHEX [Concomitant]
  8. REGLAN [Concomitant]

REACTIONS (5)
  - BRONCHITIS [None]
  - LUNG INFECTION PSEUDOMONAL [None]
  - PHARYNGITIS [None]
  - PNEUMONITIS [None]
  - PULMONARY TUBERCULOSIS [None]
